FAERS Safety Report 6642324-3 (Version None)
Quarter: 2010Q1

REPORT INFORMATION
  Report Type: 
  Country: None (occurrence: None)
  Receive Date: 20100319
  Receipt Date: 20100316
  Transmission Date: 20100710
  Serious: Yes (Hospitalization)
  Sender: FDA-Public Use
  Company Number: AU-ROCHE-530139

PATIENT
  Sex: Female
  Weight: 85 kg

DRUGS (20)
  1. TOCILIZUMAB [Suspect]
     Indication: RHEUMATOID ARTHRITIS
     Dosage: DOSAGE FORM REPORTED AS INFUSION.
     Route: 042
     Dates: start: 20050610
  2. TOCILIZUMAB [Suspect]
     Route: 042
  3. TOCILIZUMAB [Suspect]
     Route: 042
     Dates: start: 20080408
  4. TOCILIZUMAB [Suspect]
     Route: 042
     Dates: start: 20080707
  5. TOCILIZUMAB [Suspect]
     Route: 042
     Dates: start: 20080929
  6. TOCILIZUMAB [Suspect]
     Route: 042
     Dates: start: 20081027
  7. TOCILIZUMAB [Suspect]
     Route: 042
     Dates: end: 20081121
  8. TOCILIZUMAB [Suspect]
     Route: 042
     Dates: start: 20090216
  9. METHOTREXATE [Concomitant]
     Dates: start: 20030501
  10. FOLIC ACID [Concomitant]
     Dates: start: 20001101
  11. PREDNISOLONE [Concomitant]
     Dates: start: 20030501
  12. PREDNISOLONE [Concomitant]
     Dates: start: 20061118
  13. NAPROSYN [Concomitant]
     Dates: start: 20020501
  14. LOGYNON ED [Concomitant]
     Indication: CONTRACEPTION
     Dates: start: 19990101
  15. ENDEP [Concomitant]
     Dates: start: 20030501
  16. MODURETIC 5-50 [Concomitant]
     Dates: start: 20040901
  17. PARIET [Concomitant]
     Dates: start: 20060116
  18. SALBUTAMOL [Concomitant]
     Route: 055
     Dates: start: 19800101
  19. ACETAMINOPHEN W/ CODEINE [Concomitant]
     Dates: start: 20030101
  20. COLOXYL WITH SENNA [Concomitant]
     Dates: start: 20050819

REACTIONS (2)
  - PULMONARY EMBOLISM [None]
  - RESPIRATORY TRACT INFECTION VIRAL [None]
